FAERS Safety Report 5389031-5 (Version None)
Quarter: 2007Q3

REPORT INFORMATION
  Report Type: 
  Country: None (occurrence: None)
  Receive Date: 20070717
  Receipt Date: 20070706
  Transmission Date: 20080115
  Serious: Yes (Hospitalization)
  Sender: FDA-Public Use
  Company Number: CA-JNJFOC-20060201130

PATIENT
  Sex: Female

DRUGS (15)
  1. REMICADE [Suspect]
     Route: 042
  2. REMICADE [Suspect]
     Route: 042
  3. REMICADE [Suspect]
     Route: 042
  4. REMICADE [Suspect]
     Route: 042
  5. REMICADE [Suspect]
     Route: 042
  6. REMICADE [Suspect]
     Route: 042
  7. REMICADE [Suspect]
     Route: 042
  8. REMICADE [Suspect]
     Route: 042
  9. REMICADE [Suspect]
     Route: 042
  10. REMICADE [Suspect]
     Route: 042
  11. REMICADE [Suspect]
     Route: 042
  12. REMICADE [Suspect]
     Indication: CROHN'S DISEASE
     Dosage: RECEIVED 4 DOSES
     Route: 042
  13. SOLU-CORTEF [Concomitant]
     Indication: PREMEDICATION
     Route: 042
  14. BENADRYL [Concomitant]
     Indication: PREMEDICATION
  15. TYLENOL [Concomitant]
     Indication: PREMEDICATION
     Route: 048

REACTIONS (2)
  - ABDOMINAL PAIN [None]
  - VOMITING [None]
